FAERS Safety Report 4933061-1 (Version None)
Quarter: 2006Q1

REPORT INFORMATION
  Report Type: 
  Country: None (occurrence: None)
  Receive Date: 20060306
  Receipt Date: 20050707
  Transmission Date: 20060701
  Serious: Yes (Other)
  Sender: FDA-Public Use
  Company Number: PHHO2005FR10797

PATIENT
  Age: 59 Year
  Sex: Female
  Weight: 77 kg

DRUGS (2)
  1. FEMARA [Suspect]
     Indication: BREAST CANCER
     Dosage: 2.5 MG, QD
     Route: 048
     Dates: start: 20040116
  2. ZOLEDRONIC ACID [Suspect]
     Dosage: 4MG
     Route: 042
     Dates: start: 20040116

REACTIONS (3)
  - GINGIVITIS [None]
  - IMPAIRED HEALING [None]
  - OSTEONECROSIS [None]
